FAERS Safety Report 6715064-X (Version None)
Quarter: 2010Q2

REPORT INFORMATION
  Report Type: 
  Country: None (occurrence: None)
  Receive Date: 20100506
  Receipt Date: 20100506
  Transmission Date: 20101027
  Serious: Yes (Hospitalization)
  Sender: FDA-Public Use
  Company Number: None

PATIENT
  Age: 84 Year
  Sex: Female
  Weight: 63 kg

DRUGS (12)
  1. GLIPIZIDE [Suspect]
     Indication: DIABETES MELLITUS
     Dosage: 5MG DAILY PO
     Route: 048
  2. LISINOPRIL [Concomitant]
  3. POTASSIUM CHLORIDE [Concomitant]
  4. OMEPRAZOLE [Concomitant]
  5. SENNA [Concomitant]
  6. ATORVASTATIN [Concomitant]
  7. ALLOPURINOL [Concomitant]
  8. METOPROLOL [Concomitant]
  9. WARFARIN SODIUM [Concomitant]
  10. FENTANYL [Concomitant]
  11. FUROSEMIDE [Concomitant]
  12. HYDRALAZINE HCL [Concomitant]

REACTIONS (5)
  - ABDOMINAL PAIN [None]
  - BLOOD GLUCOSE DECREASED [None]
  - COMMUNICATION DISORDER [None]
  - LETHARGY [None]
  - WEIGHT DECREASED [None]
